FAERS Safety Report 14224516 (Version 1)
Quarter: 2017Q4

REPORT INFORMATION
  Report Type: Report from Study
  Country: None (occurrence: US)
  Receive Date: 20171127
  Receipt Date: 20171127
  Transmission Date: 20180321
  Serious: Yes (Hospitalization, Other)
  Sender: FDA-Public Use
  Company Number: US-ABBVIE-17K-163-2063927-00

PATIENT
  Sex: Female

DRUGS (1)
  1. HUMIRA [Suspect]
     Active Substance: ADALIMUMAB
     Indication: COLITIS ULCERATIVE
     Route: 058

REACTIONS (14)
  - Urinary tract infection [Recovering/Resolving]
  - Sepsis [Recovered/Resolved]
  - Spinal compression fracture [Unknown]
  - Haemorrhage [Not Recovered/Not Resolved]
  - Fall [Unknown]
  - Pneumonia [Recovered/Resolved]
  - Abdominal pain upper [Not Recovered/Not Resolved]
  - Pulmonary thrombosis [Recovered/Resolved]
  - Asthenia [Recovering/Resolving]
  - Thrombosis [Recovered/Resolved]
  - Volume blood decreased [Unknown]
  - Urinary tract infection [Recovered/Resolved]
  - Gastric ulcer [Recovering/Resolving]
  - Decreased appetite [Not Recovered/Not Resolved]

NARRATIVE: CASE EVENT DATE: 2017
